FAERS Safety Report 20713156 (Version 1)
Quarter: 2022Q2

REPORT INFORMATION
  Report Type: Spontaneous
  Country: US (occurrence: US)
  Receive Date: 20220415
  Receipt Date: 20220415
  Transmission Date: 20220721
  Serious: No
  Sender: FDA-Public Use
  Company Number: US-ALEMBIC PHARMACUETICALS LIMITED-2022SCAL000109

PATIENT

DRUGS (1)
  1. BIMATOPROST [Suspect]
     Active Substance: BIMATOPROST
     Indication: Product used for unknown indication
     Dosage: 1 DOSAGE FORM, QD  (ONCE AT NIGHT)
     Route: 061

REACTIONS (4)
  - Ocular hyperaemia [Unknown]
  - Incorrect route of product administration [Unknown]
  - Wrong product administered [Unknown]
  - Eye irritation [Unknown]
